FAERS Safety Report 7360593-1 (Version None)
Quarter: 2011Q1

REPORT INFORMATION
  Report Type: 
  Country: None (occurrence: None)
  Receive Date: 20110318
  Receipt Date: 20110307
  Transmission Date: 20110831
  Serious: Yes (Other)
  Sender: FDA-Public Use
  Company Number: IT-TEVA-270249ISR

PATIENT
  Age: 47 Year
  Sex: Female

DRUGS (3)
  1. CLARITHROMYCIN [Suspect]
     Indication: BRONCHITIS
  2. AMITRIPTYLINE HYDROCHLORIDE [Concomitant]
  3. LORAZEPAM [Concomitant]

REACTIONS (6)
  - LETHARGY [None]
  - PRESSURE OF SPEECH [None]
  - STATUS EPILEPTICUS [None]
  - DYSPHORIA [None]
  - AGITATION [None]
  - ABNORMAL BEHAVIOUR [None]
